FAERS Safety Report 7534867-5 (Version None)
Quarter: 2011Q2

REPORT INFORMATION
  Report Type: 
  Country: None (occurrence: None)
  Receive Date: 20110609
  Receipt Date: 20110530
  Transmission Date: 20111010
  Serious: Yes (Other)
  Sender: FDA-Public Use
  Company Number: DE-BIOGENIDEC-2011BI019781

PATIENT
  Age: 46 Year
  Sex: Female

DRUGS (2)
  1. LAMOTRIGINE [Concomitant]
     Indication: CONVULSION
  2. TYSABRI [Suspect]
     Indication: RELAPSING-REMITTING MULTIPLE SCLEROSIS
     Route: 042
     Dates: start: 20090903, end: 20110420

REACTIONS (1)
  - BREAST CANCER [None]
